FAERS Safety Report 13461866 (Version 4)
Quarter: 2020Q3

REPORT INFORMATION
  Report Type: Spontaneous
  Country: GB (occurrence: GB)
  Receive Date: 20170420
  Receipt Date: 20200803
  Transmission Date: 20201102
  Serious: Yes (Death, Congenital Anomaly, Other)
  Sender: FDA-Public Use
  Company Number: GB-PFIZER INC-2017172253

PATIENT
  Sex: Female
  Weight: 1.8 kg

DRUGS (2)
  1. CYTOTEC [Suspect]
     Active Substance: MISOPROSTOL
     Indication: ABORTION INDUCED
     Dosage: 800 UG, SINGLE
     Route: 064
     Dates: start: 20031009, end: 20031009
  2. MIFEGYNE [Suspect]
     Active Substance: MIFEPRISTONE
     Indication: ABORTION INDUCED
     Dosage: 200 MG, SINGLE
     Route: 064
     Dates: start: 20031007, end: 20031007

REACTIONS (3)
  - Congenital pneumonia [Fatal]
  - Maternal exposure during pregnancy [Fatal]
  - Foetal distress syndrome [Fatal]
